FAERS Safety Report 7053197-1 (Version None)
Quarter: 2010Q4

REPORT INFORMATION
  Report Type: 
  Country: None (occurrence: None)
  Receive Date: 20101020
  Receipt Date: 20101008
  Transmission Date: 20110411
  Serious: Yes (Hospitalization)
  Sender: FDA-Public Use
  Company Number: US-JNJFOC-20101002757

PATIENT
  Sex: Female
  Weight: 44.8 kg

DRUGS (9)
  1. INFLIXIMAB, RECOMBINANT [Suspect]
     Indication: CROHN'S DISEASE
     Route: 042
  2. INFLIXIMAB, RECOMBINANT [Suspect]
     Route: 042
  3. METRONIDAZOLE [Concomitant]
  4. CLINDAMYCIN [Concomitant]
  5. RIFAXIMIN [Concomitant]
  6. MULTI-VITAMINS [Concomitant]
  7. LO/OVRAL [Concomitant]
  8. ACETAMINOPHEN [Concomitant]
  9. CIMZIA [Concomitant]

REACTIONS (3)
  - ABDOMINAL ABSCESS [None]
  - ABDOMINAL PAIN [None]
  - ILEAL STENOSIS [None]
